FAERS Safety Report 14258795 (Version 1)
Quarter: 2017Q4

REPORT INFORMATION
  Report Type: Spontaneous
  Country: JP (occurrence: JP)
  Receive Date: 20171207
  Receipt Date: 20171207
  Transmission Date: 20180321
  Serious: Yes (Other)
  Sender: FDA-Public Use
  Company Number: JP-BAYER-2017-230817

PATIENT
  Age: 73 Year
  Sex: Male

DRUGS (2)
  1. XOFIGO [Suspect]
     Active Substance: RADIUM RA-223 DICHLORIDE
     Indication: METASTASES TO BONE
     Dosage: UNK UNK, Q4WK
     Route: 042
  2. XOFIGO [Suspect]
     Active Substance: RADIUM RA-223 DICHLORIDE
     Indication: HORMONE-REFRACTORY PROSTATE CANCER
     Dosage: UNK UNK, Q4WK
     Route: 042
     Dates: start: 201611, end: 201611

REACTIONS (7)
  - Hormone-refractory prostate cancer [None]
  - White blood cell count decreased [None]
  - Platelet count decreased [None]
  - Disseminated intravascular coagulation [Recovered/Resolved]
  - Metastases to bone [None]
  - Nausea [None]
  - Anaemia [None]
